FAERS Safety Report 9472209 (Version 1)
Quarter: 2013Q3

REPORT INFORMATION
  Report Type: Spontaneous
  Country: US (occurrence: None)
  Receive Date: 20130821
  Receipt Date: 20130821
  Transmission Date: 20140515
  Serious: Yes (Hospitalization)
  Sender: FDA-Public Use
  Company Number: None

PATIENT
  Age: 38 Year
  Sex: Female
  Weight: 93.44 kg

DRUGS (1)
  1. REGLAN [Suspect]
     Indication: HYPEREMESIS GRAVIDARUM
     Dosage: INTO A VEIN?ONE DAY?

REACTIONS (2)
  - Panic reaction [None]
  - Throat tightness [None]
